FAERS Safety Report 8602497-X (Version None)
Quarter: 2012Q3

REPORT INFORMATION
  Report Type: 
  Country: None (occurrence: None)
  Receive Date: 20120817
  Receipt Date: 20120807
  Transmission Date: 20120928
  Serious: Yes (Other)
  Sender: FDA-Public Use
  Company Number: GB-UCBSA-063523

PATIENT
  Age: 13 Year
  Sex: Male
  Weight: 41.7 kg

DRUGS (1)
  1. METHYLPHENIDATE HYDROCHLORIDE [Suspect]
     Indication: ATTENTION DEFICIT/HYPERACTIVITY DISORDER
     Dosage: DOSE: 20 MG
     Route: 048
     Dates: start: 20120419, end: 20120611

REACTIONS (4)
  - MALAISE [None]
  - DIZZINESS [None]
  - HALLUCINATION, VISUAL [None]
  - AGGRESSION [None]
